FAERS Safety Report 7635893-8 (Version None)
Quarter: 2011Q3

REPORT INFORMATION
  Report Type: 
  Country: None (occurrence: None)
  Receive Date: 20110726
  Receipt Date: 20110720
  Transmission Date: 20111222
  Serious: Yes (Other)
  Sender: FDA-Public Use
  Company Number: CA-GILEAD-2011-0042122

PATIENT
  Sex: Male
  Weight: 54.4 kg

DRUGS (7)
  1. PULMOZYME [Concomitant]
  2. VITAMIN D [Concomitant]
  3. ALBUTEROL [Concomitant]
  4. RESOURCE [Concomitant]
  5. AZTREONAM [Suspect]
     Indication: CYSTIC FIBROSIS
     Route: 055
     Dates: start: 20110719, end: 20110719
  6. AZITHROMYCIN [Concomitant]
  7. COTAZYM ECS [Concomitant]

REACTIONS (2)
  - CHEST DISCOMFORT [None]
  - DIZZINESS [None]
